FAERS Safety Report 26012485 (Version 2)
Quarter: 2025Q4

REPORT INFORMATION
  Report Type: Spontaneous
  Country: JP (occurrence: JP)
  Receive Date: 20251107
  Receipt Date: 20251126
  Transmission Date: 20260118
  Serious: Yes (Other)
  Sender: ABBVIE
  Company Number: JP-ABBVIE-6536723

PATIENT
  Age: 42 Year
  Sex: Female
  Weight: 48 kg

DRUGS (6)
  1. SEVOFLURANE [Suspect]
     Active Substance: SEVOFLURANE
     Indication: Maintenance of anaesthesia
     Route: 065
  2. PROPOFOL [Concomitant]
     Active Substance: PROPOFOL
     Indication: General anaesthesia
     Route: 065
  3. FENTANYL CITRATE [Concomitant]
     Active Substance: FENTANYL CITRATE
     Indication: General anaesthesia
     Route: 065
  4. ROCURONIUM [Concomitant]
     Active Substance: ROCURONIUM BROMIDE
     Indication: General anaesthesia
     Route: 065
  5. REMIFENTANIL [Concomitant]
     Active Substance: REMIFENTANIL
     Indication: Maintenance of anaesthesia
     Route: 065
  6. REMIFENTANIL [Concomitant]
     Active Substance: REMIFENTANIL
     Indication: Maintenance of anaesthesia
     Route: 065

REACTIONS (2)
  - Airway peak pressure [Recovering/Resolving]
  - Device physical property issue [Recovering/Resolving]
